FAERS Safety Report 8791219 (Version 1)
Quarter: 2012Q4

REPORT INFORMATION
  Report Type: Spontaneous
  Country: BR (occurrence: None)
  Receive Date: 20120911
  Receipt Date: 20120911
  Transmission Date: 20130627
  Serious: Yes (Hospitalization)
  Sender: FDA-Public Use
  Company Number: 7158795

PATIENT
  Age: 88 Year
  Sex: Female

DRUGS (4)
  1. EUTHYROX [Suspect]
     Indication: THYROID DISORDER
     Dosage: (1 DF, 1 in 1 D)
  2. LABERIN [Concomitant]
  3. VICOG (ALL OTHER THERAPEUTIC PRODUCTS) [Concomitant]
  4. DIAMICRON (GLICLAZIDE) [Concomitant]

REACTIONS (3)
  - Haemorrhagic stroke [None]
  - Agitation [None]
  - Blood pressure abnormal [None]
